FAERS Safety Report 23956161 (Version 7)
Quarter: 2024Q4

REPORT INFORMATION
  Report Type: Spontaneous
  Country: US (occurrence: US)
  Receive Date: 20240610
  Receipt Date: 20241016
  Transmission Date: 20250115
  Serious: No
  Sender: PFIZER
  Company Number: US-PFIZER INC-202400186539

PATIENT
  Age: 13 Year
  Sex: Male
  Weight: 33.11 kg

DRUGS (1)
  1. GENOTROPIN [Suspect]
     Active Substance: SOMATROPIN
     Indication: Growth failure
     Dosage: 1.4 MG, DAILY

REACTIONS (3)
  - Device defective [Unknown]
  - Device mechanical issue [Unknown]
  - Drug dose omission by device [Unknown]
